FAERS Safety Report 9940545 (Version 1)
Quarter: 2014Q1

REPORT INFORMATION
  Report Type: Spontaneous
  Country: US (occurrence: US)
  Receive Date: 20140303
  Receipt Date: 20140303
  Transmission Date: 20141002
  Serious: Yes (Hospitalization)
  Sender: FDA-Public Use
  Company Number: US-ALKERMES INC.-ALK-2014-002582

PATIENT
  Sex: 0

DRUGS (1)
  1. VIVITROL [Suspect]
     Indication: ALCOHOLISM
     Dosage: 380 MG, QMO
     Route: 030
     Dates: start: 20140203

REACTIONS (5)
  - Hypothermia [Recovered/Resolved]
  - Exposure to toxic agent [Unknown]
  - Loss of consciousness [Recovered/Resolved]
  - Alcohol use [Unknown]
  - Drug ineffective [Unknown]
